FAERS Safety Report 20951745 (Version 1)
Quarter: 2022Q2

REPORT INFORMATION
  Report Type: Spontaneous
  Country: US (occurrence: None)
  Receive Date: 20220611
  Receipt Date: 20220611
  Transmission Date: 20220721
  Serious: Yes (Disabling, Other)
  Sender: FDA-Public Use
  Company Number: None

PATIENT
  Age: 36 Year
  Sex: Male
  Weight: 90.72 kg

DRUGS (4)
  1. GADOLINIUM [Suspect]
     Active Substance: GADOLINIUM
     Dates: start: 20210316, end: 20210316
  2. UNSPECIFIED INGREDIENT [Suspect]
     Active Substance: UNSPECIFIED INGREDIENT
  3. DTPA CHELATION [Concomitant]
  4. NIACIN [Concomitant]
     Active Substance: NIACIN

REACTIONS (7)
  - Heavy metal increased [None]
  - Blepharospasm [None]
  - Muscle twitching [None]
  - Muscle twitching [None]
  - Anxiety [None]
  - Panic attack [None]
  - Nervous system disorder [None]

NARRATIVE: CASE EVENT DATE: 20210316
